FAERS Safety Report 19263460 (Version 4)
Quarter: 2021Q3

REPORT INFORMATION
  Report Type: Other
  Country: BE (occurrence: BE)
  Receive Date: 20210517
  Receipt Date: 20210712
  Transmission Date: 20211014
  Serious: Yes (Life-Threatening, Hospitalization)
  Sender: FDA-Public Use
  Company Number: BE-ROCHE-2830280

PATIENT
  Age: 53 Year
  Sex: Female

DRUGS (6)
  1. CYCLOPHOSPHAMIDE. [Suspect]
     Active Substance: CYCLOPHOSPHAMIDE
     Indication: B-CELL LYMPHOMA STAGE III
     Dosage: R?ACVBP REGIMEN
     Route: 065
     Dates: end: 200703
  2. PREDNISONE. [Suspect]
     Active Substance: PREDNISONE
     Indication: B-CELL LYMPHOMA STAGE III
     Dosage: R?ACVBP REGIMEN
     Route: 065
     Dates: end: 200703
  3. VINDESINE [Suspect]
     Active Substance: VINDESINE
     Indication: B-CELL LYMPHOMA STAGE III
     Dosage: R?ACVBP REGIMEN
     Route: 065
     Dates: end: 200703
  4. RITUXIMAB. [Suspect]
     Active Substance: RITUXIMAB
     Indication: B-CELL LYMPHOMA STAGE III
     Dosage: R?ACVBP REGIMEN
     Route: 065
     Dates: end: 200703
  5. DOXORUBICIN [Suspect]
     Active Substance: DOXORUBICIN
     Indication: B-CELL LYMPHOMA STAGE III
     Dosage: R?ACVBP REGIMEN
     Route: 065
     Dates: end: 200703
  6. BLEOMYCIN [Suspect]
     Active Substance: BLEOMYCIN SULFATE
     Indication: B-CELL LYMPHOMA STAGE III
     Dosage: R?ACVBP REGIMEN
     Route: 065
     Dates: end: 200703

REACTIONS (3)
  - Hepatic encephalopathy [Recovered/Resolved]
  - Hepatitis B reactivation [Recovered/Resolved]
  - Hepatic failure [Recovered/Resolved]

NARRATIVE: CASE EVENT DATE: 200711
